FAERS Safety Report 9640268 (Version 3)
Quarter: 2013Q4

REPORT INFORMATION
  Report Type: Spontaneous
  Country: US (occurrence: US)
  Receive Date: 20131023
  Receipt Date: 20131203
  Transmission Date: 20140711
  Serious: Yes (Hospitalization)
  Sender: FDA-Public Use
  Company Number: US-BAYER-2013-128275

PATIENT
  Age: 30 Year
  Sex: Female
  Weight: 124.72 kg

DRUGS (19)
  1. YAZ [Suspect]
     Dosage: UNK
     Dates: start: 1999
  2. YAZ [Suspect]
     Dosage: UNK
     Dates: start: 200802, end: 200805
  3. OCELLA [Suspect]
     Dosage: UNK
     Dates: start: 1999
  4. OCELLA [Suspect]
     Dosage: UNK
     Dates: start: 200802, end: 200805
  5. YASMIN [Suspect]
     Dosage: UNK
     Dates: start: 200802, end: 200805
  6. PROMETHAZINE [Concomitant]
     Indication: NAUSEA
     Dosage: 25 MG, 1 TABLET 3 TIMES DAILY AS NEEDED
     Dates: start: 20080219
  7. IBUPROFEN [Concomitant]
     Indication: MIGRAINE
     Dosage: UNK
     Dates: start: 1998, end: 2010
  8. CYCLOBENZAPRINE HYDROCHLORIDE [Concomitant]
     Dosage: 10 MG, 1 TABLET 3 TIMES DAILY
     Route: 048
     Dates: start: 20080315
  9. NORCO [Concomitant]
     Indication: PAIN
     Dosage: UNK
     Dates: start: 20080319
  10. HYDROCODONE/ACETAMINOPHEN [Concomitant]
     Indication: PAIN
     Dosage: 1 DF, PRN
     Route: 048
     Dates: start: 20080219
  11. HYDROCODONE/ACETAMINOPHEN [Concomitant]
     Indication: PAIN
     Dosage: UNK
     Dates: start: 20080407
  12. MOTRIN [Concomitant]
     Indication: PAIN
     Dosage: UNK
     Dates: start: 20080411
  13. VICODIN [Concomitant]
     Indication: PAIN
     Dosage: ONE EVERY FOUR HOURS P.R.N.
     Route: 048
     Dates: start: 20080506
  14. FLEXERIL [Concomitant]
     Indication: PAIN
     Dosage: 10 MG THREE TIMES DAILY
     Route: 048
     Dates: start: 20080319
  15. FLEXERIL [Concomitant]
     Indication: PAIN
     Dosage: 10 MG THREE TIMES DAILY
     Dates: start: 20080506
  16. REPRONEX [LUTEINISING HORMONE (HUMAN),MENOTROPHIN] [Concomitant]
     Dosage: UNK
     Dates: start: 20080219
  17. CYCLOBENZAPRINE [Concomitant]
     Dosage: 10 MG, 3 TIMES DAILY
  18. MACROBID [Concomitant]
     Indication: PAIN
     Dosage: 1 DF, PRN
  19. MACROBID [Concomitant]
     Indication: CYSTITIS

REACTIONS (9)
  - Pulmonary embolism [Recovered/Resolved]
  - General physical health deterioration [Recovered/Resolved]
  - Pain [Recovered/Resolved]
  - Urinary tract infection [None]
  - Deep vein thrombosis [Recovered/Resolved]
  - Injury [None]
  - Emotional distress [None]
  - Anxiety [None]
  - Anhedonia [None]
